FAERS Safety Report 4634014-3 (Version None)
Quarter: 2005Q2

REPORT INFORMATION
  Report Type: 
  Country: None (occurrence: None)
  Receive Date: 20050325
  Receipt Date: 20050127
  Transmission Date: 20051028
  Serious: No
  Sender: FDA-Public Use
  Company Number: USA041182928

PATIENT
  Age: 87 Year
  Sex: Female

DRUGS (5)
  1. FORTEO [Suspect]
     Dates: start: 20041001
  2. EVISTA [Suspect]
  3. FOSAMAX [Concomitant]
  4. ACTONEL [Concomitant]
  5. CALCIUM GLUCONATE [Concomitant]

REACTIONS (5)
  - ARTHRALGIA [None]
  - BREAST MASS [None]
  - INJECTION SITE DISCOLOURATION [None]
  - INJECTION SITE HAEMORRHAGE [None]
  - INJECTION SITE MASS [None]
